FAERS Safety Report 8774377 (Version 1)
Quarter: 2012Q4

REPORT INFORMATION
  Report Type: 
  Country: GR (occurrence: GR)
  Receive Date: 20120907
  Receipt Date: 20120907
  Transmission Date: 20130627
  Serious: Yes (Hospitalization)
  Sender: FDA-Public Use
  Company Number: GR-ELI_LILLY_AND_COMPANY-GR201208008441

PATIENT
  Age: 80 Year
  Sex: Female

DRUGS (9)
  1. GEMZAR [Suspect]
     Indication: BILE DUCT CANCER
     Dosage: 1000 mg/m2, UNK
     Route: 042
     Dates: start: 20120824
  2. CISPLATIN [Concomitant]
     Indication: BILE DUCT CANCER
     Dosage: 25 mg/m2, UNK
     Route: 042
     Dates: start: 20120824
  3. SINTROM [Concomitant]
     Indication: ATRIAL FIBRILLATION
     Dosage: 1 mg, qd
     Route: 048
  4. EMEND [Concomitant]
     Indication: NAUSEA
     Dosage: UNK UNK, single
     Dates: start: 20120824, end: 20120824
  5. ANTIEMETICS AND ANTINAUSEANTS [Concomitant]
     Indication: VOMITING
     Dosage: UNK, single
     Dates: start: 20120824, end: 20120824
  6. MEDROL [Concomitant]
     Dosage: 16 mg, UNK
     Dates: start: 20120823
  7. ZIRTEK [Concomitant]
     Dosage: UNK
     Dates: start: 20120823
  8. PROTHURIL [Concomitant]
     Dosage: UNK
     Dates: start: 20120823
  9. GLUCOPHAGE [Concomitant]
     Indication: DIABETES MELLITUS

REACTIONS (4)
  - International normalised ratio increased [Recovering/Resolving]
  - Gastrointestinal haemorrhage [Recovering/Resolving]
  - Drug interaction [Unknown]
  - Haematocrit decreased [Recovering/Resolving]
